FAERS Safety Report 18440085 (Version 5)
Quarter: 2025Q3

REPORT INFORMATION
  Report Type: Report from Study
  Country: CA (occurrence: CA)
  Receive Date: 20201029
  Receipt Date: 20250902
  Transmission Date: 20251021
  Serious: Yes (Other)
  Sender: GLAXOSMITHKLINE
  Company Number: CA-GLAXOSMITHKLINE-CA2020AMR211616

PATIENT
  Sex: Male
  Weight: 86.8 kg

DRUGS (5)
  1. ALBUTEROL SULFATE [Suspect]
     Active Substance: ALBUTEROL SULFATE
     Indication: Product used for unknown indication
  2. MEPOLIZUMAB [Suspect]
     Active Substance: MEPOLIZUMAB
     Indication: Asthma
     Dosage: 100 MG, Q4W
     Dates: start: 20201102
  3. ADVAIR HFA [Suspect]
     Active Substance: FLUTICASONE PROPIONATE\SALMETEROL XINAFOATE
     Indication: Product used for unknown indication
     Dosage: 2 PUFF(S), BID, 500 MCG
  4. PREDNISONE [Suspect]
     Active Substance: PREDNISONE
     Indication: Asthma
  5. SPIRIVA [Suspect]
     Active Substance: TIOTROPIUM BROMIDE MONOHYDRATE
     Indication: Asthma
     Dosage: 18 UG, QD

REACTIONS (11)
  - Asthma [Recovering/Resolving]
  - Obstructive airways disorder [Unknown]
  - Functional residual capacity increased [Unknown]
  - Lung diffusion test decreased [Unknown]
  - Sleep disorder due to a general medical condition [Recovering/Resolving]
  - Throat clearing [Unknown]
  - Wheezing [Unknown]
  - Rhinorrhoea [Unknown]
  - Ageusia [Unknown]
  - Anosmia [Unknown]
  - Therapeutic product effect incomplete [Unknown]
